FAERS Safety Report 9149541 (Version 1)
Quarter: 2013Q1

REPORT INFORMATION
  Report Type: Spontaneous
  Country: US (occurrence: None)
  Receive Date: 20130228
  Receipt Date: 20130228
  Transmission Date: 20140127
  Serious: Yes (Life-Threatening, Hospitalization)
  Sender: FDA-Public Use
  Company Number: None

PATIENT
  Age: 77 Year
  Sex: Male

DRUGS (1)
  1. HALOPERIDOL [Suspect]
     Indication: DEMENTIA
     Dates: start: 20121220, end: 20121228

REACTIONS (4)
  - Neuroleptic malignant syndrome [None]
  - Tachycardia [None]
  - Hypertension [None]
  - No therapeutic response [None]
